FAERS Safety Report 13653484 (Version 1)
Quarter: 2017Q2

REPORT INFORMATION
  Report Type: Spontaneous
  Country: US (occurrence: US)
  Receive Date: 20170614
  Receipt Date: 20170614
  Transmission Date: 20170830
  Serious: No
  Sender: FDA-Public Use
  Company Number: US-ROCHE-1434803

PATIENT
  Sex: Female

DRUGS (2)
  1. GABAPENTIN. [Concomitant]
     Active Substance: GABAPENTIN
     Route: 065
  2. XELODA [Suspect]
     Active Substance: CAPECITABINE
     Indication: BREAST CANCER METASTATIC
     Dosage: 2 WEEKS ON 1 WEEK OFF
     Route: 065

REACTIONS (7)
  - Dry skin [Unknown]
  - Paraesthesia [Unknown]
  - Gait disturbance [Unknown]
  - Abdominal pain [Unknown]
  - Skin fissures [Unknown]
  - Dysphonia [Unknown]
  - Neuropathy peripheral [Recovering/Resolving]
